FAERS Safety Report 5069884-0 (Version None)
Quarter: 2006Q3

REPORT INFORMATION
  Report Type: 
  Country: None (occurrence: None)
  Receive Date: 20060803
  Receipt Date: 20060725
  Transmission Date: 20061208
  Serious: Yes (Hospitalization, Other)
  Sender: FDA-Public Use
  Company Number: CH-BRISTOL-MYERS SQUIBB COMPANY-13462239

PATIENT
  Age: 17 Year
  Sex: Female

DRUGS (2)
  1. STOCRIN TABS 600 MG [Suspect]
  2. LAMIVUDINE [Suspect]

REACTIONS (14)
  - ABDOMINAL PAIN [None]
  - ABNORMAL DREAMS [None]
  - AGITATION [None]
  - BLOOD CREATINE PHOSPHOKINASE INCREASED [None]
  - DIARRHOEA [None]
  - EUPHORIC MOOD [None]
  - FEELING ABNORMAL [None]
  - GAIT DISTURBANCE [None]
  - MULTIPLE DRUG OVERDOSE INTENTIONAL [None]
  - PRURITUS [None]
  - RASH MACULAR [None]
  - SUICIDE ATTEMPT [None]
  - VISUAL DISTURBANCE [None]
  - VOMITING [None]
